FAERS Safety Report 20142166 (Version 2)
Quarter: 2021Q4

REPORT INFORMATION
  Report Type: Spontaneous
  Country: FR (occurrence: FR)
  Receive Date: 20211202
  Receipt Date: 20211222
  Transmission Date: 20220303
  Serious: Yes (Other)
  Sender: FDA-Public Use
  Company Number: FR-AMERICAN REGENT INC-2021003135

PATIENT
  Age: 4 Decade
  Sex: Female
  Weight: 76 kg

DRUGS (2)
  1. FERINJECT [Suspect]
     Active Substance: FERRIC CARBOXYMALTOSE
     Indication: Anaemia
     Dosage: 1000 UNKNOWN
     Dates: start: 20210916, end: 20210916
  2. SODIUM FEREDETATE [Concomitant]
     Active Substance: SODIUM FEREDETATE
     Indication: Anaemia
     Dosage: UNK
     Route: 048
     Dates: start: 20210915

REACTIONS (2)
  - Maternal exposure during pregnancy [Unknown]
  - Bradycardia foetal [Recovered/Resolved]

NARRATIVE: CASE EVENT DATE: 20210916
